FAERS Safety Report 13647087 (Version 1)
Quarter: 2017Q2

REPORT INFORMATION
  Report Type: Spontaneous
  Country: US (occurrence: US)
  Receive Date: 20170613
  Receipt Date: 20170613
  Transmission Date: 20170830
  Serious: Yes (Other)
  Sender: FDA-Public Use
  Company Number: None

PATIENT
  Age: 70 Year
  Sex: Female
  Weight: 65.25 kg

DRUGS (16)
  1. GLUCOVANCE [Concomitant]
     Active Substance: GLYBURIDE\METFORMIN HYDROCHLORIDE
  2. VITAMIN A [Concomitant]
     Active Substance: VITAMIN A
  3. VITAMIN D [Concomitant]
     Active Substance: CHOLECALCIFEROL
  4. ANTI-BIOTICS [Concomitant]
  5. MAGNESIUM [Concomitant]
     Active Substance: MAGNESIUM
  6. ZINC. [Concomitant]
     Active Substance: ZINC
  7. VITAMIN B12 [Concomitant]
     Active Substance: CYANOCOBALAMIN
  8. SYNTHROID [Suspect]
     Active Substance: LEVOTHYROXINE SODIUM
     Indication: THYROID THERAPY
     Dosage: ?          QUANTITY:1 TABLET(S);?
     Route: 048
  9. CALCIUM [Concomitant]
     Active Substance: CALCIUM
  10. VITAMIN E [Concomitant]
     Active Substance: .ALPHA.-TOCOPHEROL
  11. VITAMIN C [Concomitant]
     Active Substance: ASCORBIC ACID
  12. INSULIN [Concomitant]
     Active Substance: INSULIN NOS
  13. METFORMIN [Concomitant]
     Active Substance: METFORMIN HYDROCHLORIDE
  14. ZYRTEC [Concomitant]
     Active Substance: CETIRIZINE HYDROCHLORIDE
  15. CRESTOR [Concomitant]
     Active Substance: ROSUVASTATIN CALCIUM
  16. MULTI VITAMIN [Concomitant]
     Active Substance: VITAMINS

REACTIONS (1)
  - Alopecia [None]

NARRATIVE: CASE EVENT DATE: 20151010
